FAERS Safety Report 8782849 (Version 2)
Quarter: 2012Q4

REPORT INFORMATION
  Report Type: 
  Country: JP (occurrence: JP)
  Receive Date: 20120913
  Receipt Date: 20120918
  Transmission Date: 20130627
  Serious: Yes (Other)
  Sender: FDA-Public Use
  Company Number: JP-GLAXOSMITHKLINE-B0829189A

PATIENT
  Age: 22 None
  Sex: Male

DRUGS (7)
  1. LAMICTAL [Suspect]
     Indication: EPILEPSY
     Dosage: 5MG Per day
     Route: 048
     Dates: start: 20120811, end: 20120816
  2. LAMICTAL [Suspect]
     Indication: EPILEPSY
     Dosage: 5MG Per day
     Route: 048
     Dates: start: 20120827, end: 20120829
  3. HYSERENIN [Concomitant]
     Indication: EPILEPSY
     Dosage: 580MG Twice per day
     Route: 048
  4. EXCEGRAN [Concomitant]
     Indication: EPILEPSY
     Dosage: 190MG Twice per day
     Route: 048
  5. MUCODYNE [Concomitant]
     Dosage: 500MG Three times per day
     Route: 048
  6. MUCOSAL [Concomitant]
     Dosage: 10MG Three times per day
     Route: 048
  7. KLARICID [Concomitant]
     Dosage: 75MG Twice per day
     Route: 048

REACTIONS (9)
  - Respiratory tract haemorrhage [Recovered/Resolved]
  - Haemorrhagic diathesis [Recovered/Resolved]
  - Mucosal haemorrhage [Recovered/Resolved]
  - Mucous membrane disorder [Recovered/Resolved]
  - Increased viscosity of bronchial secretion [Recovered/Resolved]
  - Gingival swelling [Recovered/Resolved]
  - Gingival erythema [Recovered/Resolved]
  - Bloody discharge [Recovered/Resolved]
  - Sputum discoloured [Recovered/Resolved]
